FAERS Safety Report 9158862 (Version 3)
Quarter: 2014Q4

REPORT INFORMATION
  Report Type: Spontaneous
  Country: JP (occurrence: JP)
  Receive Date: 20130313
  Receipt Date: 20141118
  Transmission Date: 20150529
  Serious: Yes (Other)
  Sender: FDA-Public Use
  Company Number: JP-RANBAXY-2013R1-66025

PATIENT
  Age: 71 Year
  Sex: Female

DRUGS (3)
  1. ACICLOVIR [Suspect]
     Active Substance: ACYCLOVIR
     Indication: OPHTHALMIC HERPES SIMPLEX
     Dosage: UNK
     Route: 065
  2. BETAMETHASONE [Suspect]
     Active Substance: BETAMETHASONE
     Indication: UVEITIS
  3. BETAMETHASONE [Suspect]
     Active Substance: BETAMETHASONE
     Indication: KERATITIS
     Dosage: UNK
     Route: 061

REACTIONS (1)
  - Drug resistance [Unknown]
